FAERS Safety Report 25461052 (Version 1)
Quarter: 2025Q2

REPORT INFORMATION
  Report Type: Spontaneous
  Country: IN (occurrence: IN)
  Receive Date: 20250620
  Receipt Date: 20250620
  Transmission Date: 20250716
  Serious: Yes (Other)
  Sender: PFIZER
  Company Number: IN-PFIZER INC-PV202500072294

PATIENT
  Age: 28 Year
  Sex: Female

DRUGS (2)
  1. CRIZOTINIB [Suspect]
     Active Substance: CRIZOTINIB
     Dosage: 250 MG, 2X/DAY (1 CAPSULE TWO TIMES A DAY FOR 3 MONTHS)
     Route: 048
     Dates: start: 202405
  2. SPIRONOLACTONE\TORSEMIDE [Concomitant]
     Active Substance: SPIRONOLACTONE\TORSEMIDE

REACTIONS (2)
  - Meningioma [Unknown]
  - Oedema peripheral [Unknown]

NARRATIVE: CASE EVENT DATE: 20250101
